FAERS Safety Report 6337214-X (Version None)
Quarter: 2009Q3

REPORT INFORMATION
  Report Type: 
  Country: None (occurrence: None)
  Receive Date: 20090902
  Receipt Date: 20071017
  Transmission Date: 20100115
  Serious: Yes (Other)
  Sender: FDA-Public Use
  Company Number: US-ASTRAZENECA-2006UW05898

PATIENT
  Age: 51 Year
  Sex: Female
  Weight: 95.3 kg

DRUGS (12)
  1. SEROQUEL [Suspect]
     Indication: SCHIZOPHRENIA
     Route: 048
     Dates: start: 19980101
  2. SEROQUEL [Suspect]
     Indication: DEPRESSION
     Route: 048
     Dates: start: 19980101
  3. SEROQUEL [Suspect]
     Route: 048
     Dates: start: 20041119
  4. SEROQUEL [Suspect]
     Route: 048
     Dates: start: 20041119
  5. GEODON [Concomitant]
     Dates: start: 20070131
  6. RISPERDAL [Concomitant]
     Dates: start: 19970101
  7. LOVASTATIN [Concomitant]
     Dates: start: 20060101
  8. DILTIAZEM [Concomitant]
     Dates: start: 20060101
  9. EFFEXOR/EFFEXOR XR [Concomitant]
     Dosage: 25-150 MG
     Dates: start: 19970617
  10. HYMULIN 70/30 [Concomitant]
     Dosage: 50 UNITS BID
     Route: 058
     Dates: start: 19970617
  11. PROPULSID [Concomitant]
     Indication: ULCER
     Dates: start: 19970617
  12. GLYBURIDE [Concomitant]
     Dates: start: 19980101

REACTIONS (3)
  - DIABETES MELLITUS [None]
  - DIABETIC NEUROPATHY [None]
  - PANCREATITIS [None]
